FAERS Safety Report 10969802 (Version 2)
Quarter: 2015Q2

REPORT INFORMATION
  Report Type: Spontaneous
  Country: IT (occurrence: IT)
  Receive Date: 20150331
  Receipt Date: 20150408
  Transmission Date: 20150821
  Serious: Yes (Death, Hospitalization, Other)
  Sender: FDA-Public Use
  Company Number: IT-ROCHE-1558304

PATIENT
  Age: 82 Year
  Sex: Male

DRUGS (9)
  1. LUCENTIS [Suspect]
     Active Substance: RANIBIZUMAB
     Indication: CHOROIDAL NEOVASCULARISATION
     Route: 050
     Dates: start: 20130311
  2. LUCENTIS [Suspect]
     Active Substance: RANIBIZUMAB
     Dosage: ELEVENTH INJECTION
     Route: 050
     Dates: start: 20150126
  3. ATORVASTATIN [Concomitant]
     Active Substance: ATORVASTATIN
  4. SPIRIVA [Concomitant]
     Active Substance: TIOTROPIUM BROMIDE MONOHYDRATE
  5. AZARGA [Concomitant]
     Active Substance: BRINZOLAMIDE\TIMOLOL MALEATE
  6. LUCENTIS [Suspect]
     Active Substance: RANIBIZUMAB
     Dosage: TENTH INJECTION
     Route: 050
     Dates: start: 20141020
  7. TAMSULOSIN [Concomitant]
     Active Substance: TAMSULOSIN
  8. ATROPINE [Concomitant]
     Active Substance: ATROPINE
  9. CARDIOASPIRINA [Concomitant]
     Active Substance: ASPIRIN

REACTIONS (5)
  - Death [Fatal]
  - Benign prostatic hyperplasia [Unknown]
  - Chronic kidney disease [Unknown]
  - Ventricular failure [Unknown]
  - Cardiac failure [Unknown]

NARRATIVE: CASE EVENT DATE: 201503
